FAERS Safety Report 6554978-0 (Version None)
Quarter: 2010Q1

REPORT INFORMATION
  Report Type: 
  Country: None (occurrence: None)
  Receive Date: 20100126
  Receipt Date: 20100126
  Transmission Date: 20100710
  Serious: No
  Sender: FDA-Public Use
  Company Number: None

PATIENT
  Age: 62 Year
  Sex: Female
  Weight: 61.6892 kg

DRUGS (3)
  1. TOPIRAMATE [Suspect]
     Indication: ARACHNOIDITIS
     Dosage: 2 - 50-MG BID PO
     Route: 048
     Dates: start: 20091212, end: 20100123
  2. TOPIRAMATE [Suspect]
     Indication: MYELOMALACIA
     Dosage: 2 - 50-MG BID PO
     Route: 048
     Dates: start: 20091212, end: 20100123
  3. TOPIRAMATE [Suspect]
     Indication: SPINAL CORD INJURY
     Dosage: 2 - 50-MG BID PO
     Route: 048
     Dates: start: 20091212, end: 20100123

REACTIONS (4)
  - DRUG INEFFECTIVE [None]
  - NEURALGIA [None]
  - PRODUCT SUBSTITUTION ISSUE [None]
  - RADICULAR PAIN [None]
